FAERS Safety Report 9383576 (Version 1)
Quarter: 2013Q3

REPORT INFORMATION
  Report Type: Spontaneous
  Country: US (occurrence: US)
  Receive Date: 20130704
  Receipt Date: 20130704
  Transmission Date: 20140515
  Serious: No
  Sender: FDA-Public Use
  Company Number: US-PFIZER INC-2013192628

PATIENT
  Age: 59 Year
  Sex: Female

DRUGS (10)
  1. BOSULIF [Suspect]
     Indication: CHRONIC MYELOID LEUKAEMIA
     Dosage: 500 MG, UNK
     Dates: start: 20130320
  2. ALPRAZOLAM [Concomitant]
     Dosage: UNK
  3. DEXLANSOPRAZOLE [Concomitant]
     Dosage: UNK
  4. EPIPEN [Concomitant]
     Dosage: UNK (2-PAK)
  5. GLUCOPHAGE XR [Concomitant]
     Dosage: UNK
  6. KLONOPIN [Concomitant]
     Dosage: UNK
  7. KLOR-CON [Concomitant]
     Dosage: UNK
  8. LASIX [Concomitant]
     Dosage: UNK
  9. SYNTHROID [Concomitant]
     Dosage: UNK
  10. ZOFRAN [Concomitant]
     Dosage: UNK

REACTIONS (2)
  - Pancreatic disorder [Unknown]
  - Gallbladder disorder [Unknown]
